FAERS Safety Report 15111977 (Version 6)
Quarter: 2018Q4

REPORT INFORMATION
  Report Type: Report from Study
  Country: CA (occurrence: CA)
  Receive Date: 20180705
  Receipt Date: 20181121
  Transmission Date: 20190204
  Serious: Yes (Death, Hospitalization, Other)
  Sender: FDA-Public Use
  Company Number: PHHO2018CA007706

PATIENT
  Age: 70 Year
  Sex: Male

DRUGS (11)
  1. METFORMIN [Concomitant]
     Active Substance: METFORMIN HYDROCHLORIDE
     Indication: TYPE 2 DIABETES MELLITUS
     Dosage: 500 MG, BID
     Route: 065
     Dates: start: 20160303
  2. DIAMICRON MR [Concomitant]
     Active Substance: GLICLAZIDE
     Indication: TYPE 2 DIABETES MELLITUS
     Dosage: 120 MG, QD
     Route: 065
     Dates: start: 20160305
  3. ACZ885 [Suspect]
     Active Substance: CANAKINUMAB
     Indication: CARDIOVASCULAR EVENT PROPHYLAXIS
     Dosage: 150 MG, UNK
     Route: 058
     Dates: start: 20171107, end: 20180131
  4. VALSARTAN. [Concomitant]
     Active Substance: VALSARTAN
     Indication: HYPERTENSION
     Dosage: 160 MG, QD
     Route: 065
     Dates: start: 201203
  5. TYLENOL [Concomitant]
     Active Substance: ACETAMINOPHEN
     Indication: OSTEOARTHRITIS
     Dosage: 1000 MG, QD
     Route: 065
     Dates: start: 20130524
  6. SPIRONOLACTONE. [Concomitant]
     Active Substance: SPIRONOLACTONE
     Indication: CARDIAC FAILURE CHRONIC
     Dosage: 25 MG, QD
     Route: 065
     Dates: start: 201203
  7. COUMADIN [Concomitant]
     Active Substance: WARFARIN SODIUM
     Indication: CARDIOVASCULAR EVENT PROPHYLAXIS
     Dosage: 75 MG, QD
     Route: 065
     Dates: start: 201203
  8. ADVAIR HFA [Concomitant]
     Active Substance: FLUTICASONE PROPIONATE\SALMETEROL XINAFOATE
     Indication: PRODUCT USED FOR UNKNOWN INDICATION
     Dosage: 25+250 MG BID
     Route: 065
     Dates: start: 20120824
  9. ACZ885 [Suspect]
     Active Substance: CANAKINUMAB
     Indication: CARDIOVASCULAR EVENT PROPHYLAXIS
     Dosage: 150 MG, QUARTERLY
     Route: 058
     Dates: start: 20170201, end: 20170802
  10. ROSUVASTATIN. [Concomitant]
     Active Substance: ROSUVASTATIN
     Indication: DYSLIPIDAEMIA
     Dosage: 120 MG, QD
     Route: 065
     Dates: start: 201203
  11. BISOPROLOL [Concomitant]
     Active Substance: BISOPROLOL
     Indication: HYPERTENSION
     Dosage: 2.5 MG, QD
     Route: 065
     Dates: start: 20140514

REACTIONS (3)
  - Lung neoplasm malignant [Not Recovered/Not Resolved]
  - Metastases to central nervous system [Fatal]
  - Bursitis [Not Recovered/Not Resolved]

NARRATIVE: CASE EVENT DATE: 20180523
